FAERS Safety Report 9099918 (Version 1)
Quarter: 2013Q1

REPORT INFORMATION
  Report Type: Spontaneous
  Country: FR (occurrence: FR)
  Receive Date: 20130214
  Receipt Date: 20130214
  Transmission Date: 20140127
  Serious: Yes (Hospitalization)
  Sender: FDA-Public Use
  Company Number: FR-PFIZER INC-2013047984

PATIENT
  Age: 29 Year
  Sex: Female
  Weight: 45 kg

DRUGS (2)
  1. ARACYTINE [Suspect]
     Indication: ACUTE MYELOID LEUKAEMIA
     Dosage: 290 MG, 1X/DAY
     Route: 042
     Dates: start: 20120216, end: 20120222
  2. DAUNORUBICIN [Concomitant]
     Indication: ACUTE MYELOID LEUKAEMIA
     Dosage: 130 MG DAILY ON D2, D3 AND D4
     Dates: start: 20120217

REACTIONS (1)
  - Toxic skin eruption [Recovered/Resolved]
